FAERS Safety Report 12264236 (Version 1)
Quarter: 2016Q2

REPORT INFORMATION
  Report Type: Spontaneous
  Country: US (occurrence: US)
  Receive Date: 20160413
  Receipt Date: 20160413
  Transmission Date: 20160815
  Serious: No
  Sender: FDA-Public Use
  Company Number: US-JNJFOC-20160226287

PATIENT
  Sex: Female

DRUGS (2)
  1. ROGAINE [Suspect]
     Active Substance: MINOXIDIL
     Indication: ALOPECIA
     Dosage: USING SINCE LAST YEAR.
     Route: 061
     Dates: start: 2015
  2. ROGAINE [Suspect]
     Active Substance: MINOXIDIL
     Route: 061

REACTIONS (6)
  - Product use issue [Unknown]
  - Off label use [Unknown]
  - Drug administered at inappropriate site [Recovering/Resolving]
  - Hair texture abnormal [Unknown]
  - Dry skin [Recovering/Resolving]
  - Alopecia [Unknown]
